FAERS Safety Report 4601260-4 (Version None)
Quarter: 2005Q1

REPORT INFORMATION
  Report Type: 
  Country: None (occurrence: None)
  Receive Date: 20050304
  Receipt Date: 20050217
  Transmission Date: 20050727
  Serious: Yes (Life-Threatening, Hospitalization, Other)
  Sender: FDA-Public Use
  Company Number: 2005-0008067

PATIENT
  Age: 41 Year
  Sex: Male
  Weight: 70 kg

DRUGS (4)
  1. VIREAD [Suspect]
     Indication: HIV INFECTION
  2. DDI (DIDANOSINE) [Concomitant]
  3. NFV (NELFINAVIR) [Concomitant]
  4. NSAIDS (NSAID'S) [Concomitant]

REACTIONS (5)
  - CEREBRAL HAEMORRHAGE [None]
  - DIALYSIS [None]
  - RENAL FAILURE CHRONIC [None]
  - TOOTH ABSCESS [None]
  - TREATMENT NONCOMPLIANCE [None]
